FAERS Safety Report 7371850-7 (Version None)
Quarter: 2011Q1

REPORT INFORMATION
  Report Type: 
  Country: None (occurrence: None)
  Receive Date: 20110324
  Receipt Date: 20110321
  Transmission Date: 20110831
  Serious: Yes (Death, Hospitalization)
  Sender: FDA-Public Use
  Company Number: US-ROCHE-765054

PATIENT
  Sex: Female
  Weight: 50.3 kg

DRUGS (15)
  1. LASIX [Concomitant]
  2. PHENERGAN [Concomitant]
     Dosage: EVERY 6 HOUR PRN
  3. ROXICET [Concomitant]
     Dosage: 5/325 MG EVERY 6 HOUR.
     Route: 048
  4. BEVACIZUMAB [Suspect]
     Indication: GLIOBLASTOMA
     Route: 042
     Dates: start: 20110211
  5. CALCIUM [Concomitant]
  6. BEVACIZUMAB [Suspect]
     Route: 042
     Dates: start: 20110225
  7. KLOR-CON [Concomitant]
  8. TOPOTECAN [Suspect]
     Indication: GLIOBLASTOMA
     Route: 065
     Dates: start: 20110212, end: 20110216
  9. TEMODAR [Suspect]
     Indication: GLIOBLASTOMA
     Dosage: TEMODAR 150 MG/M2
     Route: 048
     Dates: start: 20110211, end: 20110215
  10. KEPPRA [Concomitant]
  11. DECADRON [Concomitant]
  12. CIPRO [Concomitant]
  13. ZOFRAN [Concomitant]
     Dosage: EVERY 8 HOUR PRN
  14. OMEPRAZOLE [Concomitant]
  15. SYNTHROID [Concomitant]

REACTIONS (4)
  - INFECTION [None]
  - THROMBOCYTOPENIA [None]
  - NEUTROPENIA [None]
  - HAEMOGLOBIN [None]
